FAERS Safety Report 21723873 (Version 3)
Quarter: 2023Q1

REPORT INFORMATION
  Report Type: Spontaneous
  Country: US (occurrence: US)
  Receive Date: 20221213
  Receipt Date: 20230109
  Transmission Date: 20230418
  Serious: No
  Sender: FDA-Public Use
  Company Number: US-PFIZER INC-202201359607

PATIENT
  Age: 30 Year
  Sex: Female
  Weight: 62.585 kg

DRUGS (1)
  1. PAXLOVID [Suspect]
     Active Substance: NIRMATRELVIR\RITONAVIR
     Indication: COVID-19 treatment
     Dosage: UNK
     Dates: start: 20221123, end: 20221127

REACTIONS (18)
  - COVID-19 [Not Recovered/Not Resolved]
  - Disease recurrence [Not Recovered/Not Resolved]
  - Paraesthesia [Unknown]
  - Dysgeusia [Unknown]
  - Eye irritation [Unknown]
  - Abdominal pain [Unknown]
  - Abdominal pain upper [Unknown]
  - Hyperhidrosis [Unknown]
  - Muscle twitching [Unknown]
  - Ear congestion [Unknown]
  - Heart rate increased [Unknown]
  - Rash [Unknown]
  - Somnolence [Unknown]
  - Cold sweat [Unknown]
  - Arthropathy [Unknown]
  - Insomnia [Unknown]
  - Erythema [Unknown]
  - Conjunctivitis [Unknown]

NARRATIVE: CASE EVENT DATE: 20221204
